FAERS Safety Report 23939133 (Version 4)
Quarter: 2024Q3

REPORT INFORMATION
  Report Type: Spontaneous
  Country: US (occurrence: US)
  Receive Date: 20240604
  Receipt Date: 20240708
  Transmission Date: 20241017
  Serious: Yes (Other)
  Sender: ABBVIE
  Company Number: US-ABBVIE-5783659

PATIENT
  Age: 65 Year
  Sex: Female
  Weight: 58 kg

DRUGS (4)
  1. BOTOX [Suspect]
     Active Substance: ONABOTULINUMTOXINA
     Indication: Arthralgia
     Dosage: TIME INTERVAL: AS NECESSARY: DOSE : 99 UNITS?EVERY 1 YEAR
     Route: 030
     Dates: start: 2023, end: 2023
  2. BOTOX [Suspect]
     Active Substance: ONABOTULINUMTOXINA
     Indication: Arthralgia
     Dosage: TIME INTERVAL: AS NECESSARY: DOSE : 99 UNIT?FREQUENCY TEXT: DURING THE NIGHT
     Route: 065
     Dates: start: 20220916, end: 20220916
  3. BIOTIN [Concomitant]
     Active Substance: BIOTIN
     Indication: Facial paralysis
  4. PREDNISONE [Concomitant]
     Active Substance: PREDNISONE
     Indication: Oral infection

REACTIONS (12)
  - Facial paralysis [Recovering/Resolving]
  - Off label use [Not Recovered/Not Resolved]
  - Device issue [Unknown]
  - Product administered by wrong person [Recovered/Resolved]
  - Headache [Unknown]
  - Salivary gland atrophy [Unknown]
  - Wrong product administered [Unknown]
  - Sialoadenitis [Unknown]
  - Overdose [Not Recovered/Not Resolved]
  - Pain [Unknown]
  - Infection [Unknown]
  - Dyspnoea [Unknown]

NARRATIVE: CASE EVENT DATE: 20220916
